FAERS Safety Report 24329602 (Version 1)
Quarter: 2024Q3

REPORT INFORMATION
  Report Type: Spontaneous
  Country: US (occurrence: US)
  Receive Date: 20240917
  Receipt Date: 20240917
  Transmission Date: 20241017
  Serious: No
  Sender: SANOFI AVENTIS
  Company Number: US-SA-2024SA266729

PATIENT
  Age: 1 Year
  Sex: Female

DRUGS (2)
  1. DUPIXENT [Suspect]
     Active Substance: DUPILUMAB
     Indication: Dermatitis atopic
     Dosage: 200MG/1.14ML; INJECT 1 SYRINGE UNDER THE SKIN (SUBCUTANEOUS INJECTION) EVERY 4 WEEKS
     Route: 058
     Dates: start: 20240723
  2. VAQTA [Concomitant]
     Active Substance: HEPATITIS A VIRUS STRAIN CR 326F ANTIGEN (FORMALDEHYDE INACTIVATED)
     Indication: Immunisation
     Dosage: UNK

REACTIONS (1)
  - Sleep disorder due to a general medical condition [Unknown]

NARRATIVE: CASE EVENT DATE: 20240801
